FAERS Safety Report 8229374-0 (Version None)
Quarter: 2012Q1

REPORT INFORMATION
  Report Type: 
  Country: None (occurrence: None)
  Receive Date: 20120322
  Receipt Date: 20120316
  Transmission Date: 20120608
  Serious: Yes (Death, Life-Threatening)
  Sender: FDA-Public Use
  Company Number: FR-PFIZER INC-2012020612

PATIENT
  Age: 90 Year
  Sex: Female

DRUGS (11)
  1. METFORMIN HCL [Concomitant]
     Dosage: UNK
  2. ARIMIDEX [Concomitant]
     Dosage: UNK
  3. LOVENOX [Suspect]
     Dosage: 1 DF, DAILY
     Route: 058
     Dates: start: 20120102, end: 20120109
  4. ACETAMINOPHEN [Concomitant]
     Dosage: UNK
     Dates: start: 20120102
  5. OFLOXACIN [Suspect]
     Indication: URINARY TRACT INFECTION
     Dosage: 400 MG, DAILY
     Route: 048
     Dates: start: 20111222, end: 20111227
  6. CEFTRIAXONE [Suspect]
     Dosage: 1 G, DAILY
     Route: 058
     Dates: start: 20120106, end: 20120108
  7. ASPEGIC 1000 [Suspect]
     Dosage: UNK
     Route: 048
     Dates: start: 20120102, end: 20120109
  8. PANTOPRAZOLE [Suspect]
     Dosage: 20 MG, DAILY
     Route: 048
     Dates: start: 20120102, end: 20120109
  9. ATORVASTATIN [Concomitant]
     Dosage: UNK
     Dates: start: 20111222
  10. LASIX [Concomitant]
     Dosage: UNK
     Dates: start: 20111222
  11. PAROXETINE HYDROCHLORIDE [Concomitant]
     Dosage: UNK
     Dates: start: 20120102

REACTIONS (3)
  - RENAL FAILURE ACUTE [None]
  - THROMBOCYTOPENIA [None]
  - CARDIOMYOPATHY [None]
